FAERS Safety Report 21905668 (Version 2)
Quarter: 2023Q1

REPORT INFORMATION
  Report Type: Report from Study
  Country: CL (occurrence: CL)
  Receive Date: 20230124
  Receipt Date: 20230302
  Transmission Date: 20230418
  Serious: Yes (Life-Threatening)
  Sender: FDA-Public Use
  Company Number: CL-002147023-NVSC2023CL015012

PATIENT
  Age: 11 Year
  Sex: Female
  Weight: 48 kg

DRUGS (1)
  1. OMNITROPE [Suspect]
     Active Substance: SOMATROPIN
     Indication: Product used for unknown indication
     Dosage: (10MG/1.6MG), QD
     Route: 058
     Dates: start: 20221014

REACTIONS (3)
  - Depression [Unknown]
  - Intentional self-injury [Unknown]
  - Mood altered [Unknown]

NARRATIVE: CASE EVENT DATE: 20221110
